FAERS Safety Report 14694990 (Version 1)
Quarter: 2018Q1

REPORT INFORMATION
  Report Type: Spontaneous
  Country: US (occurrence: US)
  Receive Date: 20180329
  Receipt Date: 20180329
  Transmission Date: 20180509
  Serious: No
  Sender: FDA-Public Use
  Company Number: US-SHIRE-US201811943

PATIENT

DRUGS (1)
  1. GATTEX [Suspect]
     Active Substance: TEDUGLUTIDE\WATER
     Indication: SHORT-BOWEL SYNDROME
     Dosage: 0.24 ML, PER DAY
     Route: 065
     Dates: start: 20180323

REACTIONS (3)
  - Gastrointestinal tract irritation [Unknown]
  - Abdominal distension [Unknown]
  - Flatulence [Unknown]
